FAERS Safety Report 6814174-6 (Version None)
Quarter: 2010Q3

REPORT INFORMATION
  Report Type: 
  Country: None (occurrence: None)
  Receive Date: 20100702
  Receipt Date: 20100623
  Transmission Date: 20110219
  Serious: Yes (Other)
  Sender: FDA-Public Use
  Company Number: FR-ABBOTT-10P-056-0643860-00

PATIENT
  Sex: Female
  Weight: 53 kg

DRUGS (3)
  1. HUMIRA [Suspect]
     Indication: CROHN'S DISEASE
     Route: 058
     Dates: start: 20080101
  2. HUMIRA [Suspect]
     Indication: ANKYLOSING SPONDYLITIS
  3. PENTASA [Suspect]
     Indication: CROHN'S DISEASE
     Dosage: 2 GM DAILY
     Route: 048

REACTIONS (3)
  - HAEMATURIA [None]
  - PROTEINURIA [None]
  - URINARY TRACT INFECTION [None]
